FAERS Safety Report 14392210 (Version 1)
Quarter: 2018Q1

REPORT INFORMATION
  Report Type: Spontaneous
  Country: US (occurrence: US)
  Receive Date: 20180112
  Receipt Date: 20180112
  Transmission Date: 20180509
  Serious: No
  Sender: FDA-Public Use
  Company Number: None

PATIENT
  Sex: Female
  Weight: 116.1 kg

DRUGS (6)
  1. TYLENOL [Concomitant]
     Active Substance: ACETAMINOPHEN
  2. ASSURED NASAL RELIEF ORIGINAL [Suspect]
     Active Substance: OXYMETAZOLINE HYDROCHLORIDE
     Indication: NASAL CONGESTION
     Dosage: ?          QUANTITY:1 SPRAY(S);OTHER ROUTE:INTRAL NASAL?
     Route: 045
     Dates: start: 20180109, end: 20180112
  3. VYVANSE [Concomitant]
     Active Substance: LISDEXAMFETAMINE DIMESYLATE
  4. ADVALR [Concomitant]
  5. PROTONIX [Concomitant]
     Active Substance: PANTOPRAZOLE SODIUM
  6. MOTRIN [Concomitant]
     Active Substance: IBUPROFEN

REACTIONS (1)
  - Toothache [None]

NARRATIVE: CASE EVENT DATE: 20180110
